FAERS Safety Report 20496306 (Version 3)
Quarter: 2022Q1

REPORT INFORMATION
  Report Type: Report from Study
  Country: DE (occurrence: DE)
  Receive Date: 20220221
  Receipt Date: 20220314
  Transmission Date: 20220423
  Serious: Yes (Hospitalization)
  Sender: FDA-Public Use
  Company Number: DE-PFIZER INC-202200003907

PATIENT
  Age: 54 Year
  Sex: Male
  Weight: 118.1 kg

DRUGS (2)
  1. ABROCITINIB [Suspect]
     Active Substance: ABROCITINIB
     Indication: Dermatitis atopic
     Dosage: 200 MG, 1X/DAY
     Route: 048
     Dates: start: 20210408, end: 20220102
  2. IBUPROFEN [Concomitant]
     Active Substance: IBUPROFEN
     Indication: Intervertebral disc protrusion
     Dosage: 400 MG, AS NEEDED
     Route: 048
     Dates: start: 2018

REACTIONS (1)
  - Colon cancer [Recovered/Resolved]

NARRATIVE: CASE EVENT DATE: 20211227
